FAERS Safety Report 8063466-4 (Version None)
Quarter: 2012Q1

REPORT INFORMATION
  Report Type: 
  Country: None (occurrence: None)
  Receive Date: 20120123
  Receipt Date: 20120112
  Transmission Date: 20120608
  Serious: Yes (Hospitalization)
  Sender: FDA-Public Use
  Company Number: PHHY2012BR002985

PATIENT
  Sex: Male

DRUGS (1)
  1. FORASEQ [Suspect]

REACTIONS (2)
  - FATIGUE [None]
  - PAIN [None]
